FAERS Safety Report 9241678 (Version 2)
Quarter: 2013Q2

REPORT INFORMATION
  Report Type: Spontaneous
  Country: HU (occurrence: HU)
  Receive Date: 20130419
  Receipt Date: 20130426
  Transmission Date: 20140414
  Serious: Yes (Death, Hospitalization)
  Sender: FDA-Public Use
  Company Number: HU-JNJFOC-20130408673

PATIENT
  Age: 62 Year
  Sex: Female

DRUGS (7)
  1. XARELTO [Suspect]
     Indication: EMBOLISM VENOUS
     Route: 048
     Dates: start: 20130324, end: 20130326
  2. XARELTO [Suspect]
     Indication: PULMONARY EMBOLISM
     Route: 048
     Dates: start: 20130324, end: 20130326
  3. XARELTO [Suspect]
     Indication: DEEP VEIN THROMBOSIS
     Route: 048
     Dates: start: 20130324, end: 20130326
  4. FRAXIPARIN [Concomitant]
     Indication: PULMONARY EMBOLISM
     Route: 058
     Dates: start: 20130305, end: 20130325
  5. FRAXIPARIN [Concomitant]
     Indication: DEEP VEIN THROMBOSIS
     Route: 058
     Dates: start: 20130305, end: 20130325
  6. SYNCUMAR [Concomitant]
     Indication: PULMONARY EMBOLISM
     Route: 048
     Dates: start: 20130307, end: 20130323
  7. SYNCUMAR [Concomitant]
     Indication: DEEP VEIN THROMBOSIS
     Route: 048
     Dates: start: 20130307, end: 20130323

REACTIONS (3)
  - Acute respiratory failure [Fatal]
  - Pneumonia [Not Recovered/Not Resolved]
  - Sepsis [Not Recovered/Not Resolved]
